FAERS Safety Report 8792699 (Version 1)
Quarter: 2012Q4

REPORT INFORMATION
  Report Type: 
  Country: FR (occurrence: FR)
  Receive Date: 20120918
  Receipt Date: 20120918
  Transmission Date: 20130627
  Serious: Yes (Hospitalization)
  Sender: FDA-Public Use
  Company Number: FR-SANOFI-AVENTIS-2012SA067673

PATIENT
  Age: 52 Year
  Sex: Male

DRUGS (1)
  1. OXALIPLATINE [Suspect]
     Indication: COLON CANCER
     Route: 042
     Dates: start: 20120914, end: 20120914

REACTIONS (1)
  - Overdose [Unknown]
